FAERS Safety Report 8677484 (Version 4)
Quarter: 2013Q1

REPORT INFORMATION
  Report Type: Spontaneous
  Country: JP (occurrence: JP)
  Receive Date: 20120723
  Receipt Date: 20130311
  Transmission Date: 20140127
  Serious: Yes (Death, Hospitalization, Other)
  Sender: FDA-Public Use
  Company Number: PHHY2012JP061096

PATIENT
  Age: 72 Year
  Sex: Female
  Weight: 73 kg

DRUGS (9)
  1. TEGRETOL [Suspect]
     Indication: TRIGEMINAL NEURALGIA
     Dosage: 2 DF, DAILY
     Route: 048
     Dates: start: 20090313
  2. TEGRETOL [Suspect]
     Dosage: 2 DF, DAILY
     Route: 048
     Dates: start: 20120509
  3. TEGRETOL [Suspect]
     Dosage: 2 DF, DAILY
     Route: 048
     Dates: start: 20120516
  4. TEGRETOL [Suspect]
     Dosage: 2 DF, DAILY
     Route: 048
     Dates: start: 20120529, end: 20120618
  5. MICOMBI [Concomitant]
     Indication: HYPERTENSION
     Dosage: 2 DF, UNK
     Route: 048
     Dates: end: 20120619
  6. ALLELOCK OD [Concomitant]
     Indication: ECZEMA
     Dosage: 10 MG, UNK
     Route: 048
     Dates: start: 20120615, end: 20120619
  7. PREDONINE [Concomitant]
     Indication: ECZEMA
     Dosage: 10 MG, UNK
     Route: 048
     Dates: start: 20120615, end: 20120619
  8. PREDONINE [Concomitant]
     Dosage: 40 MG, DAILY
     Route: 048
  9. CELESTAMINE [Concomitant]
     Indication: ECZEMA
     Dosage: 1 DF, UNK
     Route: 048
     Dates: start: 20120615, end: 20120619

REACTIONS (30)
  - Drug reaction with eosinophilia and systemic symptoms [Fatal]
  - Hepatitis fulminant [Fatal]
  - Hepatic function abnormal [Fatal]
  - Depressed level of consciousness [Fatal]
  - Pyrexia [Fatal]
  - Hepatomegaly [Fatal]
  - Hepatitis [Fatal]
  - Blood bilirubin increased [Fatal]
  - Hepatic encephalopathy [Fatal]
  - Transaminases increased [Fatal]
  - Malaise [Fatal]
  - Prothrombin time shortened [Fatal]
  - White blood cell count increased [Fatal]
  - Micturition frequency decreased [Fatal]
  - Eczema [Fatal]
  - Haemoglobin decreased [Fatal]
  - Haematocrit decreased [Fatal]
  - Pruritus [Fatal]
  - Pulseless electrical activity [Fatal]
  - Rash generalised [Fatal]
  - Decreased appetite [Fatal]
  - Platelet count decreased [Fatal]
  - Respiratory distress [Fatal]
  - Heart rate increased [Fatal]
  - Blood pressure decreased [Fatal]
  - Ventricular fibrillation [Fatal]
  - Cardiac arrest [Fatal]
  - Disseminated intravascular coagulation [Fatal]
  - Renal failure acute [Fatal]
  - Device related infection [Unknown]
